FAERS Safety Report 17575151 (Version 1)
Quarter: 2020Q1

REPORT INFORMATION
  Report Type: Spontaneous
  Country: DE (occurrence: DE)
  Receive Date: 20200324
  Receipt Date: 20200324
  Transmission Date: 20200409
  Serious: Yes (Other)
  Sender: FDA-Public Use
  Company Number: NVSC2020DE080209

PATIENT
  Sex: Female
  Weight: 95 kg

DRUGS (1)
  1. CLARITHROMYCIN. [Suspect]
     Active Substance: CLARITHROMYCIN
     Indication: PNEUMONIA
     Dosage: UNK
     Route: 065
     Dates: start: 20191218, end: 20191224

REACTIONS (6)
  - Breast pain [Recovering/Resolving]
  - Purulence [Recovering/Resolving]
  - Dysgeusia [Recovering/Resolving]
  - Erythema [Recovering/Resolving]
  - Mastitis [Recovering/Resolving]
  - Drug ineffective [Unknown]

NARRATIVE: CASE EVENT DATE: 20191219
